FAERS Safety Report 25462989 (Version 1)
Quarter: 2025Q2

REPORT INFORMATION
  Report Type: Spontaneous
  Country: US (occurrence: US)
  Receive Date: 20250620
  Receipt Date: 20250620
  Transmission Date: 20250717
  Serious: No
  Sender: GALPHARM INTERNATIONAL
  Company Number: US-PERRIGO-25US001991

PATIENT
  Age: 92 Year
  Sex: Male
  Weight: 65.76 kg

DRUGS (1)
  1. DICLOFENAC SODIUM [Suspect]
     Active Substance: DICLOFENAC SODIUM
     Indication: Back pain
     Route: 061
     Dates: start: 20250203, end: 20250204

REACTIONS (2)
  - Product administered at inappropriate site [Unknown]
  - Drug effective for unapproved indication [Unknown]

NARRATIVE: CASE EVENT DATE: 20250203
